FAERS Safety Report 18772259 (Version 5)
Quarter: 2022Q1

REPORT INFORMATION
  Report Type: Spontaneous
  Country: US (occurrence: US)
  Receive Date: 20210121
  Receipt Date: 20220325
  Transmission Date: 20220424
  Serious: Yes (Hospitalization)
  Sender: FDA-Public Use
  Company Number: US-VERTEX PHARMACEUTICALS-2021-000667

PATIENT
  Age: 0 Year
  Sex: Male
  Weight: 9.71 kg

DRUGS (6)
  1. TRIKAFTA [Suspect]
     Active Substance: ELEXACAFTOR\IVACAFTOR\TEZACAFTOR
     Indication: Cystic fibrosis
     Dosage: 2 TABS (100 MG ELEXACAFTOR/50 MG TEZACAFTOR/75 MG IVACAFTOR) AM AND 1 TAB (150 MG IVACAFTOR) PM
     Route: 048
     Dates: start: 20200521
  2. CHOLECALCIFEROL [Concomitant]
     Active Substance: CHOLECALCIFEROL
  3. PANCRELIPASE [Concomitant]
     Active Substance: PANCRELIPASE
  4. INSULIN NOS [Concomitant]
     Active Substance: INSULIN NOS
  5. PULMOZYME [Concomitant]
     Active Substance: DORNASE ALFA
  6. TOBRAMYCIN [Concomitant]
     Active Substance: TOBRAMYCIN
     Route: 055

REACTIONS (4)
  - Neonatal respiratory distress [Recovered/Resolved]
  - Sepsis neonatal [Recovered/Resolved]
  - Hypoglycaemia neonatal [Recovered/Resolved]
  - Exposure via breast milk [Unknown]

NARRATIVE: CASE EVENT DATE: 20210107
